FAERS Safety Report 4548326-5 (Version None)
Quarter: 2004Q4

REPORT INFORMATION
  Report Type: 
  Country: None (occurrence: None)
  Receive Date: 20041220
  Receipt Date: 20041110
  Transmission Date: 20050328
  Serious: Yes (Hospitalization)
  Sender: FDA-Public Use
  Company Number: US_0409105266

PATIENT
  Age: 38 Year
  Sex: Female
  Weight: 98 kg

DRUGS (14)
  1. ZYPREXA [Suspect]
     Indication: PANIC ATTACK
     Dosage: 15 MG
     Dates: start: 20020114, end: 20030801
  2. ZYPREXA [Suspect]
     Dosage: 2.5 MG/1 AT BEDTIME
     Route: 048
     Dates: start: 20020516, end: 20020601
  3. PROZAC [Suspect]
     Indication: DEPRESSION
     Route: 048
  4. HUMULIN 70/30 [Suspect]
     Indication: DIABETES MELLITUS
     Dosage: 30 U/IN THE MORNING
     Dates: start: 20030826
  5. EFFEXOR [Concomitant]
  6. KLONOPIN [Concomitant]
  7. TEGRETOL (CARBAMAZEPINE RIVOPHARM) [Concomitant]
  8. WELLBUTRIN SR [Concomitant]
  9. AMBIEN [Concomitant]
  10. LEXAPRO [Concomitant]
  11. GABITRIL [Concomitant]
  12. SYNTHROID [Concomitant]
  13. SEROQUEL [Concomitant]
  14. REMERON (MIRTAZAPINE ORIFARM) [Concomitant]

REACTIONS (25)
  - ANXIETY [None]
  - APATHY [None]
  - ASTHENIA [None]
  - BLOOD CHOLESTEROL INCREASED [None]
  - BLOOD GLUCOSE INCREASED [None]
  - DIABETES MELLITUS NON-INSULIN-DEPENDENT [None]
  - DISTURBANCE IN ATTENTION [None]
  - DIZZINESS [None]
  - DRUG INEFFECTIVE [None]
  - DYSPHORIA [None]
  - DYSPNOEA [None]
  - FEAR [None]
  - GASTROENTERITIS VIRAL [None]
  - INCREASED APPETITE [None]
  - INITIAL INSOMNIA [None]
  - INSOMNIA [None]
  - LETHARGY [None]
  - OVERDOSE [None]
  - PANIC REACTION [None]
  - SOMNOLENCE [None]
  - SUICIDAL IDEATION [None]
  - TEARFULNESS [None]
  - TREMOR [None]
  - VISION BLURRED [None]
  - WEIGHT INCREASED [None]
